FAERS Safety Report 8848946 (Version 1)
Quarter: 2012Q4

REPORT INFORMATION
  Report Type: Spontaneous
  Country: CA (occurrence: None)
  Receive Date: 20121017
  Receipt Date: 20121017
  Transmission Date: 20130627
  Serious: Yes (Other)
  Sender: FDA-Public Use
  Company Number: None

PATIENT
  Age: 52 Month
  Sex: Female
  Weight: 105 kg

DRUGS (1)
  1. LIPITOR (ATORVASTATIN CALCIUM) [Suspect]

REACTIONS (1)
  - Thyroid pain [None]
